FAERS Safety Report 18404385 (Version 2)
Quarter: 2020Q4

REPORT INFORMATION
  Report Type: Spontaneous
  Country: US (occurrence: US)
  Receive Date: 20201020
  Receipt Date: 20201030
  Transmission Date: 20210114
  Serious: Yes (Other)
  Sender: FDA-Public Use
  Company Number: US-DSJP-DSU-2020-130290

PATIENT
  Sex: Female

DRUGS (2)
  1. ENHERTU [Suspect]
     Active Substance: FAM-TRASTUZUMAB DERUXTECAN-NXKI
     Indication: BONE CANCER
     Dosage: 295 MG, ONCE EVERY 3 WK
     Route: 042
     Dates: start: 20200205
  2. ENHERTU [Suspect]
     Active Substance: FAM-TRASTUZUMAB DERUXTECAN-NXKI
     Indication: BREAST CANCER

REACTIONS (3)
  - Depression [Unknown]
  - Neuropathy peripheral [Unknown]
  - Mental impairment [Unknown]

NARRATIVE: CASE EVENT DATE: 2020
